FAERS Safety Report 9948970 (Version 2)
Quarter: 2014Q1

REPORT INFORMATION
  Report Type: Report from Study
  Country: BR (occurrence: BR)
  Receive Date: 20140303
  Receipt Date: 20140303
  Transmission Date: 20141002
  Serious: Yes (Other)
  Sender: FDA-Public Use
  Company Number: BR-ROCHE-1336261

PATIENT
  Sex: Male
  Weight: 84 kg

DRUGS (4)
  1. ACTEMRA [Suspect]
     Indication: RHEUMATOID ARTHRITIS
     Dosage: MOST RECENT DOSE : 04/DEC/2013
     Route: 042
     Dates: start: 20120815
  2. LOSARTAN [Concomitant]
  3. OMEPRAZOLE [Concomitant]
  4. ARAVA [Concomitant]

REACTIONS (4)
  - Blood triglycerides increased [Not Recovered/Not Resolved]
  - Deltaretrovirus test positive [Unknown]
  - Psoriasis [Not Recovered/Not Resolved]
  - Abdominal discomfort [Not Recovered/Not Resolved]
